FAERS Safety Report 10045996 (Version 1)
Quarter: 2014Q1

REPORT INFORMATION
  Report Type: Spontaneous
  Country: BR (occurrence: BR)
  Receive Date: 20140330
  Receipt Date: 20140330
  Transmission Date: 20141002
  Serious: Yes (Hospitalization)
  Sender: FDA-Public Use
  Company Number: BR-009507513-1403BRA012336

PATIENT
  Sex: Female
  Weight: 75 kg

DRUGS (3)
  1. MERCILON  CONTI [Suspect]
     Indication: CONTRACEPTION
     Dosage: 1 DF, QD
     Route: 048
     Dates: start: 2006, end: 2013
  2. MERCILON  CONTI [Suspect]
     Dosage: 1 DF, QD
     Route: 048
     Dates: start: 2013, end: 2014
  3. OLMETEC HCT [Concomitant]
     Indication: HYPERTENSION
     Dosage: 1 DF, QD
     Route: 048

REACTIONS (4)
  - Upper limb fracture [Recovered/Resolved]
  - Limb operation [Recovered/Resolved]
  - Abnormal withdrawal bleeding [Recovered/Resolved]
  - Abnormal withdrawal bleeding [Not Recovered/Not Resolved]
